FAERS Safety Report 9699068 (Version 1)
Quarter: 2013Q4

REPORT INFORMATION
  Report Type: Spontaneous
  Country: US (occurrence: None)
  Receive Date: 20131105
  Receipt Date: 20131105
  Transmission Date: 20140711
  Serious: Yes (Hospitalization, Other)
  Sender: FDA-Public Use
  Company Number: 2013038759

PATIENT
  Age: 52 Year
  Sex: Female
  Weight: 56.7 kg

DRUGS (27)
  1. ZEMAIRA [Suspect]
     Indication: ALPHA-1 ANTI-TRYPSIN DEFICIENCY
     Route: 042
     Dates: start: 20131001
  2. ZEMAIRA [Suspect]
     Indication: OBSTRUCTIVE AIRWAYS DISORDER
     Route: 042
     Dates: start: 20131001
  3. IBUPROFEN (IBUPROFEN) [Concomitant]
  4. FLEXERIL (CYCLOBENZAPRINE HYDROCHLORIDE) [Concomitant]
  5. DIPHENHYDRAMINE (DIPHENHYDRAMINE) [Concomitant]
  6. SODIUM CHLORIDE [Concomitant]
  7. EPI-PEN (EPINEPHRINE HYDROCHLORIDE) [Concomitant]
  8. LMX (LIDOCAINE) [Concomitant]
  9. CELLCEPT (MYCOPHENOLATE MOFETIL) [Concomitant]
  10. NORVASC (AMLODIPINE) [Concomitant]
  11. MAGIC MOUTHWASH (ALL OTHER THERAPEUTIC PRODUCTS) [Concomitant]
  12. FOSAMAX (ALENDRONATE SODIUM) [Concomitant]
  13. XANAX (ALPRAZOLAM) [Concomitant]
  14. FERROUS  SULFATE(FERROUS SULFATE) [Concomitant]
  15. PRILOSEC [Concomitant]
  16. PROGRAF (TACROLIMUS) [Concomitant]
  17. MAGNESIUM OXIDE (MAGNESIUM OXIDE) [Concomitant]
  18. SPIRIVA (TIOTROPIUM BROMIDE) [Concomitant]
  19. BACTRIM (BACTRIM) [Concomitant]
  20. CITRACAL (CALCIUM CITRATE) [Concomitant]
  21. VALCYTE (VALGANCICLOVIR HYDROCHLORIDE) [Concomitant]
  22. PRENATAL VITAMIN (PRENATAL VITAMINS) [Concomitant]
  23. PERCOCET (OXYCOCET) [Concomitant]
  24. PREDNISONE (PREDNISONE) [Concomitant]
  25. LIDOCAINE (LIDOCAINE) [Concomitant]
  26. HEPARIN (HEPARIN) [Concomitant]
  27. GAMUNEX (IMMUNOGLOBULIN HUMAN NORMAL) [Concomitant]

REACTIONS (1)
  - Pneumonia [None]
